FAERS Safety Report 4319929-8 (Version None)
Quarter: 2004Q1

REPORT INFORMATION
  Report Type: 
  Country: None (occurrence: None)
  Receive Date: 20040317
  Receipt Date: 20040311
  Transmission Date: 20041129
  Serious: Yes (Other)
  Sender: FDA-Public Use
  Company Number: 2004203294US

PATIENT

DRUGS (1)
  1. SOLU-MEDROL [Suspect]
     Dosage: 1 G, QD, IV
     Route: 042

REACTIONS (1)
  - RED MAN SYNDROME [None]
